FAERS Safety Report 14406421 (Version 3)
Quarter: 2018Q2

REPORT INFORMATION
  Report Type: Spontaneous
  Country: DE (occurrence: DE)
  Receive Date: 20180118
  Receipt Date: 20180405
  Transmission Date: 20180711
  Serious: Yes (Hospitalization)
  Sender: FDA-Public Use
  Company Number: DE-JNJFOC-20180116234

PATIENT
  Age: 49 Year
  Sex: Female

DRUGS (1)
  1. STELARA [Suspect]
     Active Substance: USTEKINUMAB
     Indication: CROHN^S DISEASE
     Route: 042
     Dates: start: 20170921

REACTIONS (3)
  - Crohn^s disease [Recovered/Resolved]
  - Intestinal stenosis [Unknown]
  - Anastomotic complication [Unknown]

NARRATIVE: CASE EVENT DATE: 20180104
